FAERS Safety Report 10160211 (Version 1)
Quarter: 2014Q2

REPORT INFORMATION
  Report Type: Spontaneous
  Country: US (occurrence: None)
  Receive Date: 20140507
  Receipt Date: 20140507
  Transmission Date: 20141212
  Serious: No
  Sender: FDA-Public Use
  Company Number: None

PATIENT
  Age: 60 Year
  Sex: Female
  Weight: 58.97 kg

DRUGS (7)
  1. VENLAFAXINE HCL [Suspect]
     Indication: DEPRESSION
     Route: 048
     Dates: start: 2007, end: 2014
  2. GABAPENTIN [Suspect]
     Dosage: NO LONGER TAKING
  3. SIMVASTATIN [Suspect]
  4. FOLIC ACID [Concomitant]
  5. VIVACTIVE [Concomitant]
  6. CALCIUM PLUS [Concomitant]
  7. OMEPRAZOLE [Concomitant]

REACTIONS (4)
  - Scab [None]
  - Erythema [None]
  - Stomatitis [None]
  - No therapeutic response [None]
